FAERS Safety Report 8072486-5 (Version None)
Quarter: 2012Q1

REPORT INFORMATION
  Report Type: 
  Country: None (occurrence: None)
  Receive Date: 20120126
  Receipt Date: 20120120
  Transmission Date: 20120608
  Serious: Yes (Hospitalization)
  Sender: FDA-Public Use
  Company Number: US-PFIZER INC-2012017258

PATIENT
  Sex: Male
  Weight: 114.74 kg

DRUGS (12)
  1. FUROSEMIDE [Concomitant]
     Dosage: UNK
  2. WARFARIN [Concomitant]
     Dosage: UNK
  3. ACETYLSALICYLIC ACID [Concomitant]
     Dosage: 81 MG, UNK
  4. VITAMIN B-12 [Concomitant]
     Dosage: UNK
  5. AMLODIPINE [Concomitant]
     Indication: HYPERTENSION
     Dosage: UNK
  6. COLCHICINE [Concomitant]
     Indication: GOUT
     Dosage: UNK, AS NEEDED
  7. OMEPRAZOLE [Concomitant]
     Dosage: UNK
  8. METOPROLOL [Concomitant]
     Dosage: UNK
  9. REVATIO [Suspect]
     Indication: PULMONARY HYPERTENSION
     Dosage: 20 MG, 3X/DAY
     Route: 048
     Dates: start: 20110817, end: 20111216
  10. CYMBALTA [Concomitant]
     Indication: ARTHROPATHY
     Dosage: UNK
  11. AVAPRO [Concomitant]
     Indication: HYPERTENSION
     Dosage: UNK
  12. LIPITOR [Concomitant]
     Dosage: UNK

REACTIONS (7)
  - MALAISE [None]
  - TINNITUS [None]
  - EPISTAXIS [None]
  - DEAFNESS BILATERAL [None]
  - DIZZINESS [None]
  - VOMITING [None]
  - HEAD DISCOMFORT [None]
